FAERS Safety Report 25209688 (Version 2)
Quarter: 2025Q2

REPORT INFORMATION
  Report Type: Spontaneous
  Country: PL (occurrence: PL)
  Receive Date: 20250417
  Receipt Date: 20250423
  Transmission Date: 20250716
  Serious: Yes (Hospitalization, Other)
  Sender: MYLAN
  Company Number: PL-002147023-NVSC2025PL056379

PATIENT
  Sex: Female

DRUGS (1)
  1. IMATINIB [Suspect]
     Active Substance: IMATINIB
     Indication: Chronic myeloid leukaemia

REACTIONS (3)
  - Haemolysis [Recovered/Resolved]
  - Haemolytic anaemia [Unknown]
  - Haemoglobin decreased [Unknown]

NARRATIVE: CASE EVENT DATE: 20190401
